FAERS Safety Report 4893389-0 (Version None)
Quarter: 2006Q1

REPORT INFORMATION
  Report Type: 
  Country: None (occurrence: None)
  Receive Date: 20060124
  Receipt Date: 20060111
  Transmission Date: 20060701
  Serious: Yes (Other)
  Sender: FDA-Public Use
  Company Number: 2006008040

PATIENT
  Sex: Male
  Weight: 77.1115 kg

DRUGS (7)
  1. LIPITOR [Suspect]
     Indication: BLOOD CHOLESTEROL INCREASED
     Dosage: 20 MG (20 MG, 1 IN 1 D)
  2. VIAGRA [Suspect]
     Indication: ERECTILE DYSFUNCTION
     Dosage: 50 MG, PRN
     Dates: start: 20050901
  3. ALL OTHER THERAPEUTIC PRODUCTS [Suspect]
     Indication: ERECTILE DYSFUNCTION
     Dates: start: 20051201
  4. TOPROL-XL [Concomitant]
  5. ALLOPURINOL [Concomitant]
  6. CARDURA [Concomitant]
  7. LISINOPRIL  W/HYDROCHLOROTHIAZIDE [Concomitant]

REACTIONS (5)
  - DRUG EFFECT DECREASED [None]
  - DRUG INEFFECTIVE [None]
  - DRUG INTERACTION [None]
  - ERECTILE DYSFUNCTION [None]
  - PROSTATE CANCER [None]
